FAERS Safety Report 10597366 (Version 1)
Quarter: 2014Q4

REPORT INFORMATION
  Report Type: Spontaneous
  Country: US (occurrence: None)
  Receive Date: 20141120
  Receipt Date: 20141120
  Transmission Date: 20150529
  Serious: No
  Sender: FDA-Public Use
  Company Number: None

PATIENT
  Sex: Female
  Weight: 84.8 kg

DRUGS (2)
  1. LOSARTAN 100MG [Suspect]
     Active Substance: LOSARTAN
     Indication: HYPERTENSION
     Dosage: #90 1 TAB EVERY DAY PO
     Route: 048
     Dates: start: 20140320, end: 20140930
  2. VALSARTAN. [Suspect]
     Active Substance: VALSARTAN
     Indication: HYPERTENSION
     Dosage: #90 1-TABLET EVERY DAY PO
     Route: 048
     Dates: start: 20140930

REACTIONS (2)
  - Product substitution issue [None]
  - Headache [None]
